FAERS Safety Report 14832670 (Version 1)
Quarter: 2018Q2

REPORT INFORMATION
  Report Type: Report from Study
  Country: US (occurrence: US)
  Receive Date: 20180501
  Receipt Date: 20180501
  Transmission Date: 20180711
  Serious: Yes (Hospitalization)
  Sender: FDA-Public Use
  Company Number: US-MYLANLABS-2018M1027772

PATIENT
  Sex: Female

DRUGS (1)
  1. OXYBUTYNIN. [Suspect]
     Active Substance: OXYBUTYNIN CHLORIDE
     Indication: HYPERHIDROSIS
     Dosage: TO EACH AXILLA; EVERY MORNING
     Route: 061

REACTIONS (1)
  - Pyelonephritis [Recovered/Resolved]
